FAERS Safety Report 8589742-4 (Version None)
Quarter: 2012Q3

REPORT INFORMATION
  Report Type: 
  Country: None (occurrence: None)
  Receive Date: 20120731
  Receipt Date: 20120717
  Transmission Date: 20120928
  Serious: Yes (Other)
  Sender: FDA-Public Use
  Company Number: AUR-APL-2012-02850

PATIENT
  Age: 68 Year
  Sex: Female

DRUGS (9)
  1. ACYCLOVIR SODIUM [Suspect]
     Indication: ORAL HERPES
     Dosage: (400 MG), ORAL
     Route: 048
     Dates: start: 20120315, end: 20120322
  2. ALLOPURINOL [Concomitant]
  3. CALCEOS (LEKOVIT CA) [Concomitant]
  4. DEXAMETHASONE SODIUM PHOSPHATE [Concomitant]
  5. OXYCODONE HCL [Concomitant]
  6. OMEPRAZOLE [Suspect]
     Indication: GASTRIC DISORDER
     Dosage: (20 MG), ORAL
     Route: 048
     Dates: start: 20120315
  7. VELCADE [Concomitant]
  8. MOVICOL (NULYTELY /01053601/) [Concomitant]
  9. FLUCONAZOLE [Suspect]
     Indication: CANDIDIASIS
     Dosage: (50 MG), ORAL
     Route: 048
     Dates: start: 20120315, end: 20120322

REACTIONS (2)
  - BLOOD ALKALINE PHOSPHATASE INCREASED [None]
  - LIVER FUNCTION TEST ABNORMAL [None]
